FAERS Safety Report 24450671 (Version 2)
Quarter: 2025Q1

REPORT INFORMATION
  Report Type: Spontaneous
  Country: FR (occurrence: FR)
  Receive Date: 20241017
  Receipt Date: 20250103
  Transmission Date: 20250409
  Serious: Yes (Life-Threatening)
  Sender: FRESENIUS KABI
  Company Number: None

PATIENT
  Age: 60 Year
  Sex: Female
  Weight: 72 kg

DRUGS (5)
  1. TYENNE [Suspect]
     Active Substance: TOCILIZUMAB-AAZG
     Indication: Rheumatoid arthritis
     Route: 042
     Dates: start: 20240925, end: 20240925
  2. HYTACAND [CANDESARTAN CILEXETIL, HYDROCHLOROTHIAZIDE] [Concomitant]
     Indication: Product used for unknown indication
  3. ARAVA [LEFLUNOMIDE] [Concomitant]
     Indication: Product used for unknown indication
  4. LAMALINE [BELLADONNA (TITREATED POWDER OF), caffeine, OPIUM (DRY EXTRA [Concomitant]
     Indication: Product used for unknown indication
  5. ATORVASTATIN [Concomitant]
     Active Substance: ATORVASTATIN
     Indication: Product used for unknown indication

REACTIONS (1)
  - Anaphylactic shock [Recovered/Resolved]

NARRATIVE: CASE EVENT DATE: 20240925
